FAERS Safety Report 23241190 (Version 3)
Quarter: 2024Q2

REPORT INFORMATION
  Report Type: Spontaneous
  Country: BE (occurrence: BE)
  Receive Date: 20231129
  Receipt Date: 20240503
  Transmission Date: 20240716
  Serious: Yes (Death, Other)
  Sender: FDA-Public Use
  Company Number: BE-AMGEN-BELSP2023209829

PATIENT

DRUGS (2)
  1. PARSABIV [Suspect]
     Active Substance: ETELCALCETIDE HYDROCHLORIDE
     Indication: Hyperparathyroidism
     Dosage: UNK (7+/-2 MG/DIALYSIS)
     Route: 065
  2. CINACALCET HYDROCHLORIDE [Suspect]
     Active Substance: CINACALCET HYDROCHLORIDE
     Indication: Hyperparathyroidism
     Dosage: UNK (53+/-27 MG/D)
     Route: 065

REACTIONS (7)
  - Death [Fatal]
  - Hungry bone syndrome [Unknown]
  - Delayed graft function [Unknown]
  - Blood phosphorus decreased [Unknown]
  - Hyperparathyroidism [Unknown]
  - Graft loss [Unknown]
  - Hypercalcaemia [Unknown]
